FAERS Safety Report 5696778-X (Version None)
Quarter: 2008Q2

REPORT INFORMATION
  Report Type: 
  Country: None (occurrence: None)
  Receive Date: 20080404
  Receipt Date: 20080404
  Transmission Date: 20081010
  Serious: No
  Sender: FDA-Public Use
  Company Number: None

PATIENT
  Sex: Female
  Weight: 41 kg

DRUGS (2)
  1. SEROQUEL [Suspect]
  2. AZITHROMYCIN [Suspect]

REACTIONS (1)
  - UNEVALUABLE EVENT [None]
